FAERS Safety Report 7322622-0 (Version None)
Quarter: 2011Q1

REPORT INFORMATION
  Report Type: 
  Country: None (occurrence: None)
  Receive Date: 20110301
  Receipt Date: 20091130
  Transmission Date: 20110831
  Serious: No
  Sender: FDA-Public Use
  Company Number: US-PFIZER INC-2009294859

PATIENT
  Sex: Male

DRUGS (2)
  1. GLIPIZIDE [Suspect]
     Dosage: UNK
  2. LANTUS [Suspect]
     Dosage: UNK

REACTIONS (4)
  - URTICARIA [None]
  - HYPOAESTHESIA [None]
  - PRURITUS [None]
  - BLOOD GLUCOSE DECREASED [None]
